FAERS Safety Report 19798971 (Version 1)
Quarter: 2021Q3

REPORT INFORMATION
  Report Type: Spontaneous
  Country: US (occurrence: US)
  Receive Date: 20210907
  Receipt Date: 20210907
  Transmission Date: 20211014
  Serious: Yes (Other)
  Sender: FDA-Public Use
  Company Number: None

PATIENT
  Age: 41 Year
  Sex: Female
  Weight: 65.8 kg

DRUGS (1)
  1. GLATIRAMER [Suspect]
     Active Substance: GLATIRAMER
     Indication: MULTIPLE SCLEROSIS
     Dosage: OTHER FREQUENCY:INJ. 3 X PER WK;?
     Route: 058
     Dates: start: 20210702, end: 20210907

REACTIONS (4)
  - Product substitution issue [None]
  - Fall [None]
  - Injury [None]
  - Dizziness [None]

NARRATIVE: CASE EVENT DATE: 20210702
